FAERS Safety Report 4486942-X (Version None)
Quarter: 2004Q3

REPORT INFORMATION
  Report Type: 
  Country: None (occurrence: None)
  Receive Date: 20040921
  Receipt Date: 20031022
  Transmission Date: 20050211
  Serious: Yes (Hospitalization)
  Sender: FDA-Public Use
  Company Number: 163-20785-03100554(0)

PATIENT
  Age: 90 Year
  Sex: Female

DRUGS (8)
  1. THALOMID [Suspect]
     Indication: LUNG NEOPLASM MALIGNANT
     Dosage: 100 MG, DAILY, ORAL
     Route: 048
     Dates: start: 20031002, end: 20031003
  2. PREVACID [Concomitant]
  3. SINGULAIR [Concomitant]
  4. CATAPRES [Concomitant]
  5. TENORMIN [Concomitant]
  6. XANAX [Concomitant]
  7. COUMADIN [Concomitant]
  8. OXYGEN (OXYGEN) [Concomitant]

REACTIONS (3)
  - ASTHENIA [None]
  - NERVOUSNESS [None]
  - THROMBOSIS [None]
